FAERS Safety Report 16007289 (Version 1)
Quarter: 2019Q1

REPORT INFORMATION
  Report Type: Report from Study
  Country: ES (occurrence: ES)
  Receive Date: 20190226
  Receipt Date: 20190226
  Transmission Date: 20190418
  Serious: Yes (Other)
  Sender: FDA-Public Use
  Company Number: ES-PFIZER INC-2019079609

PATIENT
  Age: 4 Year
  Sex: Male
  Weight: 20 kg

DRUGS (2)
  1. ONCASPAR [Suspect]
     Active Substance: PEGASPARGASE
     Indication: ACUTE LYMPHOCYTIC LEUKAEMIA
     Dosage: 825 IU, EVERY 15 DAYS
     Route: 030
     Dates: start: 20170925, end: 20171009
  2. METHYLPREDNISOLONE SODIUM SUCCINATE. [Suspect]
     Active Substance: METHYLPREDNISOLONE SODIUM SUCCINATE
     Indication: ACUTE LYMPHOCYTIC LEUKAEMIA
     Dosage: 25 MG, 2X/DAY (EVERY 12 HOURS)
     Route: 065
     Dates: start: 20170914, end: 20171018

REACTIONS (1)
  - Hypertriglyceridaemia [Recovered/Resolved]

NARRATIVE: CASE EVENT DATE: 20171009
